FAERS Safety Report 7503793-X (Version None)
Quarter: 2011Q2

REPORT INFORMATION
  Report Type: 
  Country: None (occurrence: None)
  Receive Date: 20110518
  Receipt Date: 20110504
  Transmission Date: 20111010
  Serious: Yes (Other)
  Sender: FDA-Public Use
  Company Number: 2011MA005691

PATIENT
  Age: 51 Year
  Sex: Male

DRUGS (1)
  1. FLUOXETINE [Suspect]
     Indication: DEPRESSION
     Dosage: 40 MG

REACTIONS (4)
  - HYPOTENSION [None]
  - SINUS BRADYCARDIA [None]
  - ALTERED STATE OF CONSCIOUSNESS [None]
  - SYNCOPE [None]
